FAERS Safety Report 8763834 (Version 2)
Quarter: 2014Q1

REPORT INFORMATION
  Report Type: Spontaneous
  Country: US (occurrence: US)
  Receive Date: 20120831
  Receipt Date: 20140328
  Transmission Date: 20141002
  Serious: Yes (Other)
  Sender: FDA-Public Use
  Company Number: US-BAYER-2012-088424

PATIENT
  Age: 23 Year
  Sex: Female

DRUGS (2)
  1. YAZ [Suspect]
     Dosage: UNK
     Route: 048
     Dates: start: 2012
  2. YASMIN [Suspect]
     Dosage: UNK
     Route: 048
     Dates: start: 2012

REACTIONS (6)
  - Retinal artery occlusion [None]
  - Cerebrovascular accident [None]
  - Injury [None]
  - Pain [None]
  - Pain [None]
  - Fear of disease [None]
